FAERS Safety Report 19469439 (Version 2)
Quarter: 2021Q3

REPORT INFORMATION
  Report Type: Report from Study
  Country: None (occurrence: US)
  Receive Date: 20210629
  Receipt Date: 20210708
  Transmission Date: 20211014
  Serious: Yes (Hospitalization, Other)
  Sender: FDA-Public Use
  Company Number: US-ABBVIE-21K-163-3965436-00

PATIENT
  Sex: Female

DRUGS (1)
  1. HUMIRA [Suspect]
     Active Substance: ADALIMUMAB
     Indication: HIDRADENITIS
     Dosage: CITRATE FREE
     Route: 058

REACTIONS (9)
  - Loss of consciousness [Recovered/Resolved]
  - Loss of consciousness [Recovering/Resolving]
  - Vomiting [Unknown]
  - Syncope [Recovered/Resolved]
  - Fall [Unknown]
  - Abdominal pain upper [Recovering/Resolving]
  - Head injury [Unknown]
  - Nausea [Recovering/Resolving]
  - Seizure [Unknown]
